FAERS Safety Report 5742329-0 (Version None)
Quarter: 2008Q2

REPORT INFORMATION
  Report Type: 
  Country: None (occurrence: None)
  Receive Date: 20080515
  Receipt Date: 20080505
  Transmission Date: 20081010
  Serious: Yes (Death, Hospitalization)
  Sender: FDA-Public Use
  Company Number: 144-21880-08020851

PATIENT
  Age: 64 Year
  Sex: Female

DRUGS (5)
  1. REVLIMID [Suspect]
     Indication: MYELODYSPLASTIC SYNDROME
     Dosage: 10 MG, DAILY, ORAL
     Route: 048
     Dates: start: 20071217, end: 20080123
  2. METFORMIN HCL [Concomitant]
  3. AMIODARONE HCL [Concomitant]
  4. SINTROM [Concomitant]
  5. OMEPRAZOLE [Concomitant]

REACTIONS (36)
  - ACTIVATED PARTIAL THROMBOPLASTIN TIME PROLONGED [None]
  - ANURIA [None]
  - BLOOD DISORDER [None]
  - BLOOD PRESSURE DECREASED [None]
  - BLOOD UREA INCREASED [None]
  - CANDIDIASIS [None]
  - CULTURE POSITIVE [None]
  - DEHYDRATION [None]
  - ECCHYMOSIS [None]
  - GENERAL PHYSICAL HEALTH DETERIORATION [None]
  - HAEMODYNAMIC INSTABILITY [None]
  - HEPATOMEGALY [None]
  - HYPOTHERMIA [None]
  - HYPOVENTILATION [None]
  - INTERNATIONAL NORMALISED RATIO INCREASED [None]
  - METABOLIC ACIDOSIS [None]
  - MULTI-ORGAN DISORDER [None]
  - MUSCLE ATROPHY [None]
  - NERVOUS SYSTEM DISORDER [None]
  - OEDEMA [None]
  - PANCYTOPENIA [None]
  - POOR PERIPHERAL CIRCULATION [None]
  - PROTEUS INFECTION [None]
  - PROTHROMBIN TIME PROLONGED [None]
  - PSEUDOMONAS INFECTION [None]
  - SEPTIC SHOCK [None]
  - SHOCK [None]
  - SINUS TACHYCARDIA [None]
  - SKIN EXFOLIATION [None]
  - SKIN NECROSIS [None]
  - SKIN ULCER [None]
  - SOFT TISSUE INFECTION [None]
  - SOMNOLENCE [None]
  - SPLENOMEGALY [None]
  - TACHYPNOEA [None]
  - UMBILICAL HERNIA [None]
